FAERS Safety Report 5421274-4 (Version None)
Quarter: 2007Q3

REPORT INFORMATION
  Report Type: 
  Country: None (occurrence: None)
  Receive Date: 20070821
  Receipt Date: 20070815
  Transmission Date: 20080115
  Serious: Yes (Hospitalization)
  Sender: FDA-Public Use
  Company Number: US-ELI_LILLY_AND_COMPANY-US200707001468

PATIENT
  Age: 66 Year
  Sex: Female
  Weight: 74.829 kg

DRUGS (11)
  1. BYETTA [Suspect]
     Indication: TYPE 2 DIABETES MELLITUS
     Dosage: 5 UG, 2/D
     Route: 058
     Dates: start: 20070305, end: 20070326
  2. BYETTA [Suspect]
     Dosage: 10 UG, 2/D
     Route: 058
     Dates: start: 20070327, end: 20070606
  3. ZANTAC 150 [Concomitant]
     Indication: GASTROOESOPHAGEAL REFLUX DISEASE
     Dosage: 150 MG, 2/D
     Route: 048
  4. PREMARIN [Concomitant]
     Indication: POSTMENOPAUSE
     Dosage: 0.3 MG, DAILY (1/D)
     Route: 048
  5. LOPID [Concomitant]
     Indication: LIPIDS INCREASED
     Dosage: 600 MG, 2/D
     Route: 048
  6. NAPROXEN [Concomitant]
     Indication: PAIN
     Dosage: 500 MG, 2/D
     Route: 048
  7. NEURONTIN [Concomitant]
     Indication: NEUROPATHY
     Dosage: 600 MG, 3/D
     Route: 048
  8. LASIX [Concomitant]
     Indication: HYPERTENSION
     Dosage: 40 MG, DAILY (1/D)
     Route: 048
  9. DILTIAZEM [Concomitant]
     Indication: HYPERTENSION
     Dosage: 360 MG, DAILY (1/D)
  10. BENICAR [Concomitant]
     Indication: HYPERTENSION
     Dosage: 40 MG, DAILY (1/D)
     Route: 048
  11. METFORMIN HCL [Concomitant]
     Indication: TYPE 2 DIABETES MELLITUS
     Dosage: 1000 MG, 2/D
     Route: 048

REACTIONS (6)
  - ABDOMINAL INFECTION [None]
  - COLITIS ISCHAEMIC [None]
  - DIARRHOEA [None]
  - PRESYNCOPE [None]
  - VOMITING [None]
  - WEIGHT DECREASED [None]
